FAERS Safety Report 20609160 (Version 2)
Quarter: 2022Q1

REPORT INFORMATION
  Report Type: Spontaneous
  Country: GB (occurrence: PT)
  Receive Date: 20220317
  Receipt Date: 20220325
  Transmission Date: 20220423
  Serious: Yes (Death, Other)
  Sender: FDA-Public Use
  Company Number: GB-SCALL-2022-PT-000029

PATIENT
  Sex: 0

DRUGS (70)
  1. DUTASTERIDE [Suspect]
     Active Substance: DUTASTERIDE
     Indication: Product used for unknown indication
     Route: 065
  2. FLUOXETINE HYDROCHLORIDE [Suspect]
     Active Substance: FLUOXETINE HYDROCHLORIDE
     Route: 065
  3. TELMISARTAN [Suspect]
     Active Substance: TELMISARTAN
     Route: 065
  4. PROPRANOLOL [Suspect]
     Active Substance: PROPRANOLOL HYDROCHLORIDE
     Route: 065
  5. ESCHERICHIA COLI [Suspect]
     Active Substance: ESCHERICHIA COLI
     Route: 065
  6. NORFLOXACIN [Suspect]
     Active Substance: NORFLOXACIN
     Route: 065
  7. DOCETAXEL [Suspect]
     Active Substance: DOCETAXEL
     Route: 065
  8. ALENDRONIC ACID [Suspect]
     Active Substance: ALENDRONIC ACID
     Route: 065
  9. POTASSIUM IODIDE [Suspect]
     Active Substance: POTASSIUM IODIDE
     Route: 065
  10. ACETAMINOPHEN [Suspect]
     Active Substance: ACETAMINOPHEN
     Route: 065
  11. PITAVASTATIN [Suspect]
     Active Substance: PITAVASTATIN
     Route: 065
  12. XYZAL [Suspect]
     Active Substance: LEVOCETIRIZINE DIHYDROCHLORIDE
     Dosage: 5 MG, UNKNOWN
     Route: 065
  13. ATORVASTATIN CALCIUM [Suspect]
     Active Substance: ATORVASTATIN CALCIUM
     Route: 065
  14. TRAMADOL HYDROCHLORIDE [Suspect]
     Active Substance: TRAMADOL HYDROCHLORIDE
     Route: 065
  15. HYDROMORPHONE [Suspect]
     Active Substance: HYDROMORPHONE
     Route: 065
  16. BRINZOLAMIDE [Suspect]
     Active Substance: BRINZOLAMIDE
     Route: 065
  17. CELECOXIB [Suspect]
     Active Substance: CELECOXIB
     Dosage: 100 MG, UNKNOWN
     Route: 065
  18. IBANDRONIC ACID [Suspect]
     Active Substance: IBANDRONIC ACID
     Route: 065
  19. AGOMELATINE [Suspect]
     Active Substance: AGOMELATINE
     Route: 065
  20. TOCILIZUMAB [Suspect]
     Active Substance: TOCILIZUMAB
     Route: 065
  21. VORTIOXETINE [Suspect]
     Active Substance: VORTIOXETINE
     Route: 065
  22. VENLAFAXINE HYDROCHLORIDE [Suspect]
     Active Substance: VENLAFAXINE HYDROCHLORIDE
     Route: 065
  23. DOMPERIDONE [Suspect]
     Active Substance: DOMPERIDONE
     Route: 065
  24. GLUCOSAMINE [Suspect]
     Active Substance: GLUCOSAMINE
     Route: 065
  25. NIMESULIDE [Suspect]
     Active Substance: NIMESULIDE
     Route: 065
  26. HYDROCHLOROTHIAZIDE [Suspect]
     Active Substance: HYDROCHLOROTHIAZIDE
     Route: 065
  27. MYCOPHENOLIC ACID [Suspect]
     Active Substance: MYCOPHENOLIC ACID
     Route: 065
  28. BISOPROLOL FUMARATE [Suspect]
     Active Substance: BISOPROLOL FUMARATE
     Route: 065
  29. SIMVASTATIN [Suspect]
     Active Substance: SIMVASTATIN
     Route: 065
  30. ZOLEDRONIC ACID [Suspect]
     Active Substance: ZOLEDRONIC ACID
     Route: 065
  31. CILAZAPRIL ANHYDROUS [Suspect]
     Active Substance: CILAZAPRIL ANHYDROUS
     Route: 065
  32. ALISKIREN [Suspect]
     Active Substance: ALISKIREN
     Route: 065
  33. FLUVASTATIN [Suspect]
     Active Substance: FLUVASTATIN SODIUM
     Route: 065
  34. PRAVASTATIN SODIUM [Suspect]
     Active Substance: PRAVASTATIN SODIUM
     Route: 065
  35. VENLAFAXINE HYDROCHLORIDE [Suspect]
     Active Substance: VENLAFAXINE HYDROCHLORIDE
     Route: 065
  36. IMATINIB [Suspect]
     Active Substance: IMATINIB
     Route: 065
  37. SOFOSBUVIR [Suspect]
     Active Substance: SOFOSBUVIR
     Route: 065
  38. CHOLECALCIFEROL [Suspect]
     Active Substance: CHOLECALCIFEROL
     Route: 065
  39. ETANERCEPT [Suspect]
     Active Substance: ETANERCEPT
     Route: 065
  40. DONEPEZIL [Suspect]
     Active Substance: DONEPEZIL
     Route: 065
  41. HUMAN IMMUNOGLOBULIN G [Suspect]
     Active Substance: HUMAN IMMUNOGLOBULIN G
     Route: 065
  42. PREGABALIN [Suspect]
     Active Substance: PREGABALIN
     Dosage: 50 MG, UNKNOWN
     Route: 065
  43. SERTRALINE HYDROCHLORIDE [Suspect]
     Active Substance: SERTRALINE HYDROCHLORIDE
     Route: 065
  44. ANASTROZOLE [Suspect]
     Active Substance: ANASTROZOLE
     Route: 065
  45. TAMSULOSIN HYDROCHLORIDE [Suspect]
     Active Substance: TAMSULOSIN HYDROCHLORIDE
     Route: 065
  46. INDOMETHACIN SODIUM [Suspect]
     Active Substance: INDOMETHACIN SODIUM
     Route: 065
  47. CODEINE SULFATE [Suspect]
     Active Substance: CODEINE SULFATE
     Route: 065
  48. GINKGO [Suspect]
     Active Substance: GINKGO
     Route: 065
  49. VERAPAMIL HYDROCHLORIDE [Suspect]
     Active Substance: VERAPAMIL HYDROCHLORIDE
     Dosage: 120 MG, UNKNOWN
     Route: 065
  50. ADALIMUMAB [Suspect]
     Active Substance: ADALIMUMAB
     Route: 065
  51. RIBAVIRIN [Suspect]
     Active Substance: RIBAVIRIN
     Route: 065
  52. PENTOXIFYLLINE [Suspect]
     Active Substance: PENTOXIFYLLINE
     Route: 065
  53. ENOXAPARIN SODIUM [Suspect]
     Active Substance: ENOXAPARIN SODIUM
     Route: 065
  54. INDOMETHACIN [Suspect]
     Active Substance: INDOMETHACIN
     Route: 065
  55. ESOMEPRAZOLE [Suspect]
     Active Substance: ESOMEPRAZOLE
     Route: 065
  56. FENOFIBRATE [Suspect]
     Active Substance: FENOFIBRATE
     Route: 065
  57. EXEMESTANE [Suspect]
     Active Substance: EXEMESTANE
     Route: 065
  58. BUPRENORPHINE [Suspect]
     Active Substance: BUPRENORPHINE
     Dosage: 35 G; UNKNOWN
     Route: 065
  59. ESCITALOPRAM OXALATE [Suspect]
     Active Substance: ESCITALOPRAM OXALATE
     Route: 065
  60. EZETIMIBE [Suspect]
     Active Substance: EZETIMIBE
     Route: 065
  61. LETROZOLE [Suspect]
     Active Substance: LETROZOLE
     Route: 065
  62. SODIUM PICOSULFATE [Suspect]
     Active Substance: SODIUM PICOSULFATE
     Route: 065
  63. BISOPROLOL [Suspect]
     Active Substance: BISOPROLOL
     Route: 065
  64. NILOTINIB [Suspect]
     Active Substance: NILOTINIB
     Route: 065
  65. MIRTAZAPINE [Suspect]
     Active Substance: MIRTAZAPINE
     Route: 065
  66. LEDIPASVIR [Suspect]
     Active Substance: LEDIPASVIR
     Route: 065
  67. ACECLOFENAC [Suspect]
     Active Substance: ACECLOFENAC
     Dosage: 100 MG, UNKNOWN
     Route: 065
  68. ASPIRIN [Suspect]
     Active Substance: ASPIRIN
  69. NITROGLYCERIN [Suspect]
     Active Substance: NITROGLYCERIN
     Route: 065
  70. DILTIAZEM HYDROCHLORIDE [Suspect]
     Active Substance: DILTIAZEM HYDROCHLORIDE
     Dosage: 120 MG, UNKNOWN
     Route: 065

REACTIONS (46)
  - Headache [Fatal]
  - Blindness [Unknown]
  - Amaurosis fugax [Unknown]
  - Asthenia [Unknown]
  - Diarrhoea [Unknown]
  - Syncope [Unknown]
  - Insomnia [Unknown]
  - Tachycardia [Unknown]
  - Dizziness [Unknown]
  - Somnolence [Unknown]
  - Urinary tract disorder [Unknown]
  - Sepsis [Fatal]
  - Coma [Unknown]
  - Diplopia [Unknown]
  - Abdominal pain upper [Unknown]
  - Photophobia [Unknown]
  - Ocular discomfort [Unknown]
  - Generalised oedema [Unknown]
  - Eye pain [Unknown]
  - Fatigue [Unknown]
  - Haematuria [Unknown]
  - Presyncope [Unknown]
  - Cardio-respiratory arrest [Fatal]
  - Malaise [Unknown]
  - Somnolence [Unknown]
  - Haematemesis [Unknown]
  - Decreased appetite [Unknown]
  - Ascites [Unknown]
  - Vision blurred [Unknown]
  - Cough [Unknown]
  - Pruritus [Unknown]
  - Arthralgia [Unknown]
  - Nausea [Unknown]
  - Altered state of consciousness [Fatal]
  - Myalgia [Unknown]
  - Head discomfort [Unknown]
  - Chills [Unknown]
  - Dyspnoea [Unknown]
  - Tinnitus [Unknown]
  - Abdominal pain [Unknown]
  - Drug interaction [Unknown]
  - Haemorrhagic stroke [Fatal]
  - Fall [Unknown]
  - Blood pressure increased [Unknown]
  - Vomiting [Unknown]
  - Pyrexia [Unknown]
